FAERS Safety Report 23679729 (Version 5)
Quarter: 2025Q1

REPORT INFORMATION
  Report Type: Report from Study
  Country: US (occurrence: US)
  Receive Date: 20240327
  Receipt Date: 20250228
  Transmission Date: 20250409
  Serious: Yes (Life-Threatening, Other)
  Sender: RANBAXY
  Company Number: US-SUN PHARMACEUTICAL INDUSTRIES LTD-2024R1-438103

PATIENT
  Age: 22 Year
  Sex: Female

DRUGS (2)
  1. ABSORICA LD [Suspect]
     Active Substance: ISOTRETINOIN
     Indication: Product used for unknown indication
     Dosage: 24 MILLIGRAM, QD
     Route: 065
     Dates: start: 20230505, end: 20240314
  2. ABSORICA LD [Suspect]
     Active Substance: ISOTRETINOIN
     Dosage: 24 MILLIGRAM, QD
     Route: 065
     Dates: start: 20230420, end: 20240310

REACTIONS (4)
  - Vaginal haemorrhage [Unknown]
  - Exposure during pregnancy [Unknown]
  - Illness [Unknown]
  - Abortion spontaneous [Unknown]

NARRATIVE: CASE EVENT DATE: 20240308
